FAERS Safety Report 7242145 (Version 4)
Quarter: 2014Q2

REPORT INFORMATION
  Report Type: Spontaneous
  Country: US (occurrence: US)
  Receive Date: 20100111
  Receipt Date: 20140402
  Transmission Date: 20141212
  Serious: Yes (Hospitalization)
  Sender: FDA-Public Use
  Company Number: US-ALEXION-A201000004

PATIENT
  Age: 65 Year
  Sex: Male

DRUGS (8)
  1. SOLIRIS 300MG [Suspect]
     Indication: PAROXYSMAL NOCTURNAL HAEMOGLOBINURIA
     Dosage: 600 MG, UNK
     Route: 042
  2. SOLIRIS 300MG [Suspect]
     Dosage: 900 MG, Q2W
     Route: 042
  3. COUMADIN                           /00014802/ [Suspect]
     Dosage: 3 MG, QD
     Route: 048
     Dates: end: 20100104
  4. COUMADIN                           /00014802/ [Suspect]
     Dosage: 2 MG, QD
     Route: 048
     Dates: start: 20100104
  5. ZOLOFT                             /01011401/ [Concomitant]
     Dosage: 50 MG, QD
     Route: 048
  6. PREDNISONE [Concomitant]
     Dosage: 60 MG, BID
     Route: 048
  7. MIRALAX [Concomitant]
     Dosage: 17 G, QD
     Route: 048
  8. CYCLOSPORIN [Concomitant]
     Dosage: UNK
     Route: 048

REACTIONS (1)
  - International normalised ratio increased [Recovering/Resolving]
